FAERS Safety Report 9207265 (Version 1)
Quarter: 2013Q2

REPORT INFORMATION
  Report Type: Report from Study
  Country: DK (occurrence: DE)
  Receive Date: 20130403
  Receipt Date: 20130403
  Transmission Date: 20140414
  Serious: Yes (Hospitalization)
  Sender: FDA-Public Use
  Company Number: DE-FRI-1000043818

PATIENT
  Sex: Female

DRUGS (15)
  1. CITALOPRAM [Suspect]
     Indication: INSOMNIA
     Dosage: 10 MG
     Route: 048
     Dates: start: 20120214, end: 20120217
  2. CITALOPRAM [Interacting]
     Indication: DECREASED APPETITE
     Dosage: 20 MG
     Route: 048
     Dates: start: 20120218, end: 20120223
  3. CITALOPRAM [Interacting]
     Indication: MAJOR DEPRESSION
  4. ASS [Interacting]
     Dosage: 100 MG
     Route: 048
     Dates: start: 20110701, end: 20120223
  5. REMERGIL SOLTAB [Interacting]
     Indication: DECREASED APPETITE
     Dosage: 15 MG
     Route: 048
     Dates: start: 20120222, end: 20120223
  6. REMERGIL SOLTAB [Interacting]
     Indication: INSOMNIA
  7. REMERGIL SOLTAB [Interacting]
     Indication: MAJOR DEPRESSION
  8. CLEXANE [Interacting]
     Indication: IMMOBILE
     Dosage: 40 IU
     Route: 058
     Dates: start: 20120218
  9. CAPTOPRIL [Concomitant]
     Dosage: 37.5 MG
     Route: 048
     Dates: start: 20110701
  10. TORASEMID [Concomitant]
     Dosage: 10 MG
     Route: 048
     Dates: start: 20120103, end: 20120213
  11. TORASEMID [Concomitant]
     Dosage: 20 MG
     Route: 048
     Dates: start: 20120214, end: 20120216
  12. TORASEMID [Concomitant]
     Dosage: 15 MG
     Route: 048
     Dates: start: 20120217, end: 20120224
  13. DIGITOXIN [Concomitant]
     Dosage: 0.21 MG
     Route: 048
     Dates: start: 20120217, end: 20120217
  14. DIGITOXIN [Concomitant]
     Dosage: 0.14 MG
     Route: 048
     Dates: start: 20120218, end: 20120218
  15. DIGITOXIN [Concomitant]
     Dosage: 0.07 MG
     Route: 048
     Dates: start: 20120219

REACTIONS (4)
  - Petechiae [Recovering/Resolving]
  - Haematoma [Recovering/Resolving]
  - Platelet disorder [Recovering/Resolving]
  - Potentiating drug interaction [Recovering/Resolving]
